FAERS Safety Report 8067963-7 (Version None)
Quarter: 2012Q1

REPORT INFORMATION
  Report Type: 
  Country: None (occurrence: None)
  Receive Date: 20120124
  Receipt Date: 20110906
  Transmission Date: 20120608
  Serious: No
  Sender: FDA-Public Use
  Company Number: US-AMGEN-USASP2011045365

PATIENT
  Age: 56 Year
  Sex: Female

DRUGS (11)
  1. CALCIUM [Concomitant]
     Dosage: 3 MG, UNK
  2. FLAXSEED OIL [Concomitant]
     Dosage: 3 MG, UNK
  3. PREMARIN [Concomitant]
  4. PROLIA [Suspect]
     Indication: OSTEOPOROSIS
     Dosage: 60 MG, Q6MO
     Dates: start: 20110501
  5. VITAMIN D [Concomitant]
     Dosage: 25 IU, UNK
  6. CENTRUM SILVER                     /01292501/ [Concomitant]
  7. AMLODIPINE [Concomitant]
  8. VITAMIN E                          /00110501/ [Concomitant]
  9. XANAX [Concomitant]
  10. MELOXICAM [Concomitant]
  11. XYZAL [Concomitant]

REACTIONS (3)
  - RASH [None]
  - NASOPHARYNGITIS [None]
  - PRURITUS [None]
